FAERS Safety Report 23903424 (Version 1)
Quarter: 2024Q2

REPORT INFORMATION
  Report Type: Report from Study
  Country: US (occurrence: US)
  Receive Date: 20240527
  Receipt Date: 20240527
  Transmission Date: 20240716
  Serious: Yes (Death)
  Sender: FDA-Public Use
  Company Number: US-BAUSCH-BL-2024-008195

PATIENT
  Age: 58 Year
  Sex: Male

DRUGS (1)
  1. XIFAXAN [Suspect]
     Active Substance: RIFAXIMIN
     Indication: Hepatic encephalopathy
     Dosage: DURATION AT THE TIME OF INITIAL REPORT: 03 MONTHS
     Route: 048
     Dates: start: 202402

REACTIONS (2)
  - Lung disorder [Fatal]
  - Liver disorder [Fatal]
